FAERS Safety Report 21977977 (Version 1)
Quarter: 2023Q1

REPORT INFORMATION
  Report Type: Spontaneous
  Country: AU (occurrence: AU)
  Receive Date: 20230210
  Receipt Date: 20230210
  Transmission Date: 20230417
  Serious: Yes (Other)
  Sender: FDA-Public Use
  Company Number: None

PATIENT
  Age: 15 Year
  Sex: Male

DRUGS (3)
  1. ERYTHROMYCIN [Suspect]
     Active Substance: ERYTHROMYCIN
     Dosage: UNK
  2. AMETHOCAINE HYDROCHLORIDE [Concomitant]
  3. CHLORAMPHENICOL [Concomitant]
     Active Substance: CHLORAMPHENICOL

REACTIONS (1)
  - Corneal abrasion [Unknown]

NARRATIVE: CASE EVENT DATE: 20220407
